FAERS Safety Report 6743013-7 (Version None)
Quarter: 2010Q2

REPORT INFORMATION
  Report Type: 
  Country: None (occurrence: None)
  Receive Date: 20100527
  Receipt Date: 20100519
  Transmission Date: 20101027
  Serious: Yes (Hospitalization)
  Sender: FDA-Public Use
  Company Number: US-BIOGENIDEC-2010BI016929

PATIENT
  Age: 48 Year
  Sex: Male
  Weight: 56 kg

DRUGS (9)
  1. TYSABRI [Suspect]
     Indication: MULTIPLE SCLEROSIS
     Route: 042
     Dates: start: 20100118
  2. CHOLESTEROL MEDICATION (NOS) [Concomitant]
     Indication: BLOOD CHOLESTEROL INCREASED
     Dates: start: 20000101
  3. BLOOD PRESSURE MEDICATION (NOS) [Concomitant]
     Indication: HYPERTENSION
     Dates: start: 20000101
  4. BACLOFEN [Concomitant]
     Indication: MUSCLE SPASMS
     Dates: start: 20050101
  5. VALIUM [Concomitant]
     Dates: start: 20080101
  6. OXYCODONE [Concomitant]
     Indication: BACK PAIN
     Dates: start: 20080101
  7. OXYCODONE [Concomitant]
     Indication: PAIN IN EXTREMITY
     Dates: start: 20080101
  8. FENTANYL [Concomitant]
     Indication: BACK PAIN
     Dates: start: 20100101
  9. FENTANYL [Concomitant]
     Indication: PAIN IN EXTREMITY
     Dates: start: 20100101

REACTIONS (7)
  - ANGER [None]
  - ASTHENIA [None]
  - BLOOD PRESSURE DECREASED [None]
  - CYSTITIS [None]
  - DEAFNESS [None]
  - DEPRESSION [None]
  - THINKING ABNORMAL [None]
